FAERS Safety Report 6864896-6 (Version None)
Quarter: 2010Q3

REPORT INFORMATION
  Report Type: 
  Country: None (occurrence: None)
  Receive Date: 20100721
  Receipt Date: 20080414
  Transmission Date: 20110219
  Serious: Yes (Hospitalization, Other)
  Sender: FDA-Public Use
  Company Number: US-PFIZER INC-2008030768

PATIENT
  Sex: Female
  Weight: 45.454 kg

DRUGS (3)
  1. CHANTIX [Suspect]
     Indication: SMOKING CESSATION THERAPY
     Route: 048
     Dates: start: 20080306, end: 20080301
  2. MORPHINE [Concomitant]
     Indication: PAIN
  3. FLEXERIL [Concomitant]
     Indication: MYALGIA

REACTIONS (10)
  - ABDOMINAL PAIN [None]
  - ANGER [None]
  - DIARRHOEA [None]
  - HOSTILITY [None]
  - INFLUENZA [None]
  - INFLUENZA LIKE ILLNESS [None]
  - MALAISE [None]
  - MUSCLE SPASMS [None]
  - VIRAL INFECTION [None]
  - WRONG TECHNIQUE IN DRUG USAGE PROCESS [None]
